FAERS Safety Report 8765162 (Version 1)
Quarter: 2012Q4

REPORT INFORMATION
  Report Type: 
  Country: US (occurrence: US)
  Receive Date: 20120903
  Receipt Date: 20120903
  Transmission Date: 20130627
  Serious: Yes (Death, Hospitalization)
  Sender: FDA-Public Use
  Company Number: US-SHIRE-ALL1-2012-04116

PATIENT
  Age: 65 Year
  Sex: Male
  Weight: 162.36 kg

DRUGS (2)
  1. FOSRENOL [Suspect]
     Indication: HYPERPHOSPHATAEMIA
     Dosage: 1000 mg, Other (with meals)
     Route: 048
     Dates: start: 2005
  2. FOSRENOL [Suspect]
     Indication: RENAL FAILURE CHRONIC

REACTIONS (3)
  - Myocardial infarction [Fatal]
  - Pneumonia [Unknown]
  - Heart rate increased [Unknown]
